FAERS Safety Report 12609737 (Version 1)
Quarter: 2016Q3

REPORT INFORMATION
  Report Type: Spontaneous
  Country: US (occurrence: US)
  Receive Date: 20160801
  Receipt Date: 20160801
  Transmission Date: 20161109
  Serious: No
  Sender: FDA-Public Use
  Company Number: US-TEVA-580514USA

PATIENT
  Age: 51 Year
  Sex: Male

DRUGS (1)
  1. RANITIDINE. [Suspect]
     Active Substance: RANITIDINE
     Route: 065

REACTIONS (2)
  - Abdominal pain upper [Unknown]
  - Product odour abnormal [Unknown]

NARRATIVE: CASE EVENT DATE: 201507
